FAERS Safety Report 8389980-X (Version None)
Quarter: 2012Q2

REPORT INFORMATION
  Report Type: 
  Country: None (occurrence: None)
  Receive Date: 20120529
  Receipt Date: 20120522
  Transmission Date: 20120825
  Serious: Yes (Other)
  Sender: FDA-Public Use
  Company Number: US-PFIZER INC-2012094876

PATIENT
  Sex: Female
  Weight: 70 kg

DRUGS (3)
  1. LEVOTHYROXINE SODIUM [Concomitant]
     Indication: HYPOTHYROIDISM
     Dosage: 50 UG,DAILY
  2. VALTREX [Concomitant]
     Indication: LEUKAEMIA
     Dosage: 500 MG, DAILY
  3. LYRICA [Suspect]
     Indication: NEUROPATHY PERIPHERAL
     Dosage: 50 MG, 3X/DAY
     Route: 048
     Dates: start: 20070101

REACTIONS (15)
  - DIPLOPIA [None]
  - PYREXIA [None]
  - CONSTIPATION [None]
  - SPEECH DISORDER [None]
  - DRY MOUTH [None]
  - OEDEMA [None]
  - FLATULENCE [None]
  - BALANCE DISORDER [None]
  - DISTURBANCE IN ATTENTION [None]
  - HYPERHIDROSIS [None]
  - NOCTURIA [None]
  - MUSCLE SPASMS [None]
  - ACNE [None]
  - HEADACHE [None]
  - WEIGHT INCREASED [None]
